FAERS Safety Report 9038812 (Version 1)
Quarter: 2013Q1

REPORT INFORMATION
  Report Type: Report from Study
  Country: US (occurrence: US)
  Receive Date: 20130129
  Receipt Date: 20130129
  Transmission Date: 20140127
  Serious: No
  Sender: FDA-Public Use
  Company Number: US-ABBOTT-12P-163-0933250-00

PATIENT
  Age: 48 Year
  Sex: Female

DRUGS (4)
  1. HUMIRA 40 MG/0.8 ML PEN [Suspect]
     Indication: PSORIASIS
     Dosage: LOADING DOSE
     Dates: start: 20120503
  2. HUMIRA 40 MG/0.8 ML PEN [Suspect]
     Dates: start: 20120505
  3. METFORMIN [Concomitant]
     Indication: DIABETES MELLITUS
     Dosage: DAILY
     Route: 048
  4. NICODERM [Concomitant]
     Indication: SMOKING CESSATION THERAPY
     Dosage: PATCH

REACTIONS (6)
  - Pruritus generalised [Recovered/Resolved]
  - Pruritus [Unknown]
  - Pruritus [Unknown]
  - Injection site pain [Recovered/Resolved]
  - Injection site pain [Recovered/Resolved]
  - Injection site haemorrhage [Recovered/Resolved]
